FAERS Safety Report 4494987-9 (Version None)
Quarter: 2004Q4

REPORT INFORMATION
  Report Type: 
  Country: None (occurrence: None)
  Receive Date: 20041108
  Receipt Date: 20041028
  Transmission Date: 20050328
  Serious: Yes (Other)
  Sender: FDA-Public Use
  Company Number: US-JNJFOC-20041100020

PATIENT
  Age: 16 Year
  Sex: Female

DRUGS (5)
  1. REMICADE [Suspect]
     Dosage: (3 WEEKS AGO)
     Route: 042
  2. REMICADE [Suspect]
     Indication: CROHN'S DISEASE
     Route: 042
  3. DEPO-PROVERA [Concomitant]
  4. PREDNISONE [Concomitant]
  5. IMURAN [Concomitant]

REACTIONS (2)
  - ABASIA [None]
  - BACK PAIN [None]
